FAERS Safety Report 8710899 (Version 2)
Quarter: 2013Q1

REPORT INFORMATION
  Report Type: Spontaneous
  Country: US (occurrence: None)
  Receive Date: 20120723
  Receipt Date: 20121205
  Transmission Date: 20140127
  Serious: Yes (Hospitalization)
  Sender: FDA-Public Use
  Company Number: ACO_31073_2012

PATIENT
  Age: 42 Year
  Sex: Female
  Weight: 72.6 kg

DRUGS (4)
  1. AMPYRA [Suspect]
     Indication: PRODUCT USED FOR UNKNOWN INDICATION
     Dosage: 10MG, BID, ORAL
     Route: 048
     Dates: start: 201206, end: 2012
  2. REBIF [Suspect]
     Indication: PRODUCT USED FOR UNKNOWN INDICATION
     Dosage: 44 UG, MON, WEDS, FRIDAYS
  3. TIZANIDINE CAPSULE (TIZANIDINE HYDROCHLORIDE) CAPSULE [Suspect]
  4. ORAL CONTRACEPTIVE NOS (ORAL CONTRACEPTIVE NOS) [Concomitant]

REACTIONS (3)
  - Jaundice [None]
  - White blood cell count increased [None]
  - Neutrophil count increased [None]
